FAERS Safety Report 13235535 (Version 3)
Quarter: 2017Q2

REPORT INFORMATION
  Report Type: Report from Study
  Country: US (occurrence: US)
  Receive Date: 20170215
  Receipt Date: 20170428
  Transmission Date: 20170830
  Serious: Yes (Other)
  Sender: FDA-Public Use
  Company Number: US-009507513-1702USA004791

PATIENT
  Age: 56 Year
  Sex: Male

DRUGS (8)
  1. ERBITUX [Suspect]
     Active Substance: CETUXIMAB
     Indication: SQUAMOUS CELL CARCINOMA OF HEAD AND NECK
     Dosage: UNK
     Route: 042
     Dates: start: 2016, end: 201612
  2. FLUOROURACIL. [Suspect]
     Active Substance: FLUOROURACIL
     Dosage: UNK
     Dates: end: 2017
  3. ERBITUX [Suspect]
     Active Substance: CETUXIMAB
     Dosage: UNK
     Route: 042
     Dates: end: 2017
  4. FLUOROURACIL. [Suspect]
     Active Substance: FLUOROURACIL
     Indication: SQUAMOUS CELL CARCINOMA OF HEAD AND NECK
     Dosage: UNK
     Dates: start: 2016, end: 201609
  5. CISPLATIN. [Suspect]
     Active Substance: CISPLATIN
     Dosage: UNK
     Dates: end: 2017
  6. PEMBROLIZUMAB. [Suspect]
     Active Substance: PEMBROLIZUMAB
     Indication: SQUAMOUS CELL CARCINOMA OF HEAD AND NECK
     Dosage: STRENGTH 100MG Q3W
  7. PEMBROLIZUMAB. [Suspect]
     Active Substance: PEMBROLIZUMAB
     Dosage: UNK UNK, Q3WSTRENGTH:100MG
     Dates: start: 20170216
  8. CISPLATIN. [Suspect]
     Active Substance: CISPLATIN
     Indication: SQUAMOUS CELL CARCINOMA OF HEAD AND NECK
     Dosage: UNK
     Dates: start: 2016, end: 201609

REACTIONS (9)
  - Malignant neoplasm progression [Not Recovered/Not Resolved]
  - Therapeutic response unexpected [Unknown]
  - Drug effect incomplete [Unknown]
  - Drug ineffective [Unknown]
  - Rash erythematous [Unknown]
  - Liver function test increased [Unknown]
  - Gastroenteritis viral [Recovered/Resolved]
  - Blood alkaline phosphatase increased [Unknown]
  - Dry skin [Unknown]

NARRATIVE: CASE EVENT DATE: 2016
